FAERS Safety Report 16463554 (Version 1)
Quarter: 2019Q2

REPORT INFORMATION
  Report Type: Report from Study
  Country: IT (occurrence: IT)
  Receive Date: 20190621
  Receipt Date: 20190621
  Transmission Date: 20190711
  Serious: Yes (Other)
  Sender: FDA-Public Use
  Company Number: IT-TEVA-2019-IT-1066048

PATIENT
  Age: 55 Year
  Sex: Female

DRUGS (2)
  1. MIRTAZAPINE. [Suspect]
     Active Substance: MIRTAZAPINE
     Indication: DRUG ABUSE
     Route: 048
     Dates: start: 20190308, end: 20190308
  2. KETODOL  25 MG + 200 MG COMPRESSE [Suspect]
     Active Substance: KETOPROFEN\SUCRALFATE
     Indication: DRUG ABUSE
     Route: 048
     Dates: start: 20190308, end: 20190308

REACTIONS (4)
  - Mania [Not Recovered/Not Resolved]
  - Hallucination [Not Recovered/Not Resolved]
  - Agitation [Not Recovered/Not Resolved]
  - Drug abuse [Not Recovered/Not Resolved]

NARRATIVE: CASE EVENT DATE: 20190308
